FAERS Safety Report 25226204 (Version 2)
Quarter: 2025Q2

REPORT INFORMATION
  Report Type: Spontaneous
  Country: US (occurrence: US)
  Receive Date: 20250422
  Receipt Date: 20250424
  Transmission Date: 20250717
  Serious: No
  Sender: BAYER HEALTHCARE LLC
  Company Number: US-BAYER-2025A051440

PATIENT
  Age: 70 Year
  Sex: Male

DRUGS (13)
  1. ASTEPRO [Suspect]
     Active Substance: AZELASTINE HYDROCHLORIDE
     Indication: Nasal congestion
     Route: 045
     Dates: start: 20250410
  2. ASTEPRO [Suspect]
     Active Substance: AZELASTINE HYDROCHLORIDE
     Indication: Rhinorrhoea
  3. ASTEPRO ALLERGY [Suspect]
     Active Substance: AZELASTINE HYDROCHLORIDE
  4. KLONOPIN [Concomitant]
     Active Substance: CLONAZEPAM
     Indication: Pain
     Dosage: 1 MG, TID
     Route: 048
     Dates: start: 19950414
  5. KLONOPIN [Concomitant]
     Active Substance: CLONAZEPAM
     Indication: Prophylaxis
     Dates: start: 2024
  6. MELOXICAM [Concomitant]
     Active Substance: MELOXICAM
     Indication: Pain
     Route: 048
     Dates: start: 19950414
  7. LUNESTA [Concomitant]
     Active Substance: ESZOPICLONE
     Indication: Prophylaxis
     Route: 048
     Dates: start: 20050414
  8. SEROQUEL [Concomitant]
     Active Substance: QUETIAPINE FUMARATE
     Indication: Prophylaxis
     Route: 048
     Dates: start: 20050414
  9. REPATHA [Concomitant]
     Active Substance: EVOLOCUMAB
     Indication: Prophylaxis
     Dosage: 140MG PER ML, Q2WK
     Dates: start: 2017
  10. SENNA [Concomitant]
     Active Substance: SENNOSIDES
     Indication: Prophylaxis
     Dosage: 8.6 MG, BID
     Route: 048
     Dates: start: 2022
  11. PRILOSEC [Concomitant]
     Active Substance: OMEPRAZOLE MAGNESIUM
     Indication: Prophylaxis
     Route: 048
     Dates: start: 2022
  12. BOTOX [Concomitant]
     Active Substance: ONABOTULINUMTOXINA
     Indication: Prophylaxis
     Dates: start: 2022
  13. LEXAPRO [Concomitant]
     Active Substance: ESCITALOPRAM OXALATE
     Indication: Prophylaxis
     Dosage: 10 MG, QD
     Route: 048
     Dates: start: 2024

REACTIONS (1)
  - Drug ineffective [Recovering/Resolving]

NARRATIVE: CASE EVENT DATE: 20250410
